FAERS Safety Report 13641682 (Version 1)
Quarter: 2017Q2

REPORT INFORMATION
  Report Type: Spontaneous
  Country: US (occurrence: US)
  Receive Date: 20170611
  Receipt Date: 20170611
  Transmission Date: 20170830
  Serious: Yes (Disabling)
  Sender: FDA-Public Use
  Company Number: None

PATIENT
  Age: 68 Year
  Sex: Male
  Weight: 166.5 kg

DRUGS (22)
  1. FLONASE [Concomitant]
     Active Substance: FLUTICASONE PROPIONATE
  2. SINGULAIR [Concomitant]
     Active Substance: MONTELUKAST SODIUM
  3. TESTOSTERONE. [Concomitant]
     Active Substance: TESTOSTERONE
  4. VITAMIN D3 [Concomitant]
     Active Substance: CHOLECALCIFEROL
  5. GAS-EX [Concomitant]
  6. INSINASE [Concomitant]
  7. MESTINON [Concomitant]
     Active Substance: PYRIDOSTIGMINE BROMIDE
  8. LIOTHYRONINE [Concomitant]
     Active Substance: LIOTHYRONINE
  9. TOPIRAMATE. [Concomitant]
     Active Substance: TOPIRAMATE
  10. MULTIVITAMIN [Concomitant]
     Active Substance: VITAMINS
  11. GLYCOPYRROLATE. [Concomitant]
     Active Substance: GLYCOPYRROLATE
  12. WARFARIN [Concomitant]
     Active Substance: WARFARIN
  13. FLEBOGAMMA DIF [Suspect]
     Active Substance: HUMAN IMMUNOGLOBULIN G
     Indication: MYASTHENIA GRAVIS
     Dosage: ?          QUANTITY:1 INJECTION(S);OTHER FREQUENCY:DAILY FOR 5 DAYS;?
     Route: 042
     Dates: start: 20170410, end: 20170609
  14. LEVOTHYROXINE. [Concomitant]
     Active Substance: LEVOTHYROXINE
  15. MIRAPEX [Concomitant]
     Active Substance: PRAMIPEXOLE DIHYDROCHLORIDE
  16. IODINE. [Concomitant]
     Active Substance: IODINE
  17. CELLCEPT [Concomitant]
     Active Substance: MYCOPHENOLATE MOFETIL\MYCOPHENOLATE MOFETIL HYDROCHLORIDE
  18. PHOSPHORUS [Concomitant]
     Active Substance: PHOSPHORUS
  19. IMODIUM [Concomitant]
     Active Substance: LOPERAMIDE HYDROCHLORIDE
  20. LOSARTAN. [Concomitant]
     Active Substance: LOSARTAN
  21. LASIX [Concomitant]
     Active Substance: FUROSEMIDE
  22. ZINC. [Concomitant]
     Active Substance: ZINC

REACTIONS (4)
  - Somnolence [None]
  - Restless legs syndrome [None]
  - Viral upper respiratory tract infection [None]
  - Blood pressure increased [None]

NARRATIVE: CASE EVENT DATE: 20170512
